FAERS Safety Report 12311151 (Version 1)
Quarter: 2016Q2

REPORT INFORMATION
  Report Type: Spontaneous
  Country: TR (occurrence: TR)
  Receive Date: 20160427
  Receipt Date: 20160427
  Transmission Date: 20160815
  Serious: Yes (Hospitalization, Other)
  Sender: FDA-Public Use
  Company Number: TR-SYMPLMED PHARMACEUTICALS-2016SYMPLMED000206

PATIENT

DRUGS (5)
  1. PERINDOPRIL [Suspect]
     Active Substance: PERINDOPRIL
     Indication: PRODUCT USED FOR UNKNOWN INDICATION
     Dosage: 4 MG, QD
     Route: 048
  2. METOPROLOL. [Concomitant]
     Active Substance: METOPROLOL
     Indication: PRODUCT USED FOR UNKNOWN INDICATION
     Dosage: 50 MG, QD
  3. METRONIDAZOLE. [Concomitant]
     Active Substance: METRONIDAZOLE
     Indication: PRODUCT USED FOR UNKNOWN INDICATION
     Dosage: 1500 MG, QD
  4. OTHER SURGICAL AIDS [Suspect]
     Active Substance: UNSPECIFIED INGREDIENT
     Indication: ANGIOGRAM
     Dosage: UNK
     Route: 065
  5. AMLODIPINE [Concomitant]
     Active Substance: AMLODIPINE BESYLATE
     Indication: PRODUCT USED FOR UNKNOWN INDICATION
     Dosage: 10 MG, QD

REACTIONS (14)
  - Gastroenteritis [Unknown]
  - Platelet count increased [None]
  - Nephropathy toxic [None]
  - Abdominal pain [Unknown]
  - Acute kidney injury [Recovered/Resolved]
  - Lipase increased [None]
  - Blood pH decreased [None]
  - Dysarthria [Recovered/Resolved]
  - Blood glucose increased [None]
  - Cerebral infarction [Unknown]
  - Blood sodium decreased [None]
  - Aspartate aminotransferase increased [None]
  - Gastrointestinal protozoal infection [None]
  - Cholelithiasis [None]

NARRATIVE: CASE EVENT DATE: 2016
